FAERS Safety Report 9000167 (Version 1)
Quarter: 2013Q1

REPORT INFORMATION
  Report Type: Spontaneous
  Country: IT (occurrence: IT)
  Receive Date: 20130102
  Receipt Date: 20130102
  Transmission Date: 20140127
  Serious: Yes (Other)
  Sender: FDA-Public Use
  Company Number: IT-JNJFOC-20121212540

PATIENT
  Age: 65 Year
  Sex: Female

DRUGS (1)
  1. REMICADE [Suspect]
     Indication: COLITIS ULCERATIVE
     Route: 042
     Dates: start: 20120521, end: 20120606

REACTIONS (4)
  - Laryngospasm [Recovering/Resolving]
  - Bronchospasm [Recovering/Resolving]
  - Urticaria [Recovering/Resolving]
  - Infusion related reaction [Recovering/Resolving]
